FAERS Safety Report 9462495 (Version 3)
Quarter: 2013Q3

REPORT INFORMATION
  Report Type: Report from Study
  Country: DE (occurrence: CL)
  Receive Date: 20130816
  Receipt Date: 20130823
  Transmission Date: 20140515
  Serious: Yes (Death, Hospitalization, Other)
  Sender: FDA-Public Use
  Company Number: DE-ACTELION-A-US2013-87338

PATIENT
  Age: 58 Year
  Sex: Female

DRUGS (8)
  1. VENTAVIS [Suspect]
     Indication: PRODUCT USED FOR UNKNOWN INDICATION
     Dosage: 5 MCG, Q3HR
     Route: 045
     Dates: start: 20130806
  2. AMOXICILLIN [Concomitant]
     Indication: RESPIRATORY DISORDER
     Dosage: 500 MG, Q8H
     Dates: start: 20130805, end: 20130809
  3. ACETYLSALICYLIC ACID [Concomitant]
  4. FUROSEMIDE [Concomitant]
  5. ISOSORBIDE [Concomitant]
  6. PREDNISONE [Concomitant]
  7. SILDENAFIL [Concomitant]
  8. OXYGEN [Concomitant]

REACTIONS (5)
  - Death [Fatal]
  - Pneumonia [Recovering/Resolving]
  - Dyspnoea [Recovering/Resolving]
  - Pulmonary hypertension [Unknown]
  - Nausea [Unknown]
